FAERS Safety Report 20879422 (Version 2)
Quarter: 2022Q3

REPORT INFORMATION
  Report Type: Report from Study
  Country: GB (occurrence: GB)
  Receive Date: 20220526
  Receipt Date: 20220824
  Transmission Date: 20221027
  Serious: Yes (Hospitalization, Other)
  Sender: FDA-Public Use
  Company Number: GB-BRISTOL-MYERS SQUIBB COMPANY-2022-019065

PATIENT
  Sex: Female
  Weight: 79.5 kg

DRUGS (3)
  1. PACLITAXEL [Suspect]
     Active Substance: PACLITAXEL
     Indication: Pancreatic carcinoma metastatic
     Dosage: 4 CYCLE DAY 15?CUMULATIVE DOSE : 2130 MG?DOSE PRIOR TO SAE : 1400 MG
     Route: 042
     Dates: start: 20211209, end: 20220316
  2. GEMCITABINE [Suspect]
     Active Substance: GEMCITABINE
     Indication: Pancreatic carcinoma metastatic
     Dosage: 4 CYCLE DAY 15
     Route: 042
     Dates: start: 20211209, end: 20220316
  3. PIPERACILLIN SODIUM\TAZOBACTAM SODIUM [Concomitant]
     Active Substance: PIPERACILLIN SODIUM\TAZOBACTAM SODIUM
     Indication: Pneumonia
     Dosage: PIIPERACILLIN/TAZOBACTAM
     Route: 042
     Dates: start: 20220405

REACTIONS (2)
  - Urinary tract infection [Recovered/Resolved]
  - Lower respiratory tract infection [Recovered/Resolved]

NARRATIVE: CASE EVENT DATE: 20220405
